FAERS Safety Report 16159376 (Version 5)
Quarter: 2019Q2

REPORT INFORMATION
  Report Type: Spontaneous
  Country: KR (occurrence: KR)
  Receive Date: 20190404
  Receipt Date: 20190626
  Transmission Date: 20190711
  Serious: Yes (Hospitalization, Other)
  Sender: FDA-Public Use
  Company Number: KR-009507513-1903KOR013254

PATIENT
  Sex: Female

DRUGS (15)
  1. SODIUM CHLORIDE. [Concomitant]
     Active Substance: SODIUM CHLORIDE
     Dosage: 50 MILLILITER, QUANTITY: 2, DAYS: 1
     Dates: start: 20190413, end: 20190413
  2. SODIUM CHLORIDE. [Concomitant]
     Active Substance: SODIUM CHLORIDE
     Dosage: 50 MILLILITER, QUANTITY: 2, DAYS: 1
     Dates: start: 20190528, end: 20190528
  3. SODIUM CHLORIDE. [Concomitant]
     Active Substance: SODIUM CHLORIDE
     Dosage: 100 MILLILITER, QUANTITY: 1, DAYS: 1
     Dates: start: 20190528, end: 20190528
  4. SODIUM CHLORIDE. [Concomitant]
     Active Substance: SODIUM CHLORIDE
     Dosage: 100 MILLILITER, QUANTITY: 1, DAYS: 1
     Dates: start: 20190504, end: 20190504
  5. SODIUM CHLORIDE. [Concomitant]
     Active Substance: SODIUM CHLORIDE
     Dosage: 50 MILLILITER, QUANTITY: 2, DAYS: 1
     Dates: start: 20190313, end: 20190313
  6. KEYTRUDA [Suspect]
     Active Substance: PEMBROLIZUMAB
     Dosage: QUANTITY: 2, DAYS: 1
     Dates: start: 20190618, end: 20190618
  7. LIDOCAINE HCL HUONS [Concomitant]
     Dosage: QUANTITY: 5, DAYS: 1
     Dates: start: 20190313, end: 20190313
  8. KEYTRUDA [Suspect]
     Active Substance: PEMBROLIZUMAB
     Dosage: QUANTITY: 2, DAYS: 1
     Dates: start: 20190413, end: 20190413
  9. KEYTRUDA [Suspect]
     Active Substance: PEMBROLIZUMAB
     Dosage: QUANTITY: 2, DAYS: 1; 100MG/4ML
     Dates: start: 20190528, end: 20190528
  10. SODIUM CHLORIDE. [Concomitant]
     Active Substance: SODIUM CHLORIDE
     Dosage: 100 MILLILITER, QUANTITY: 1, DAYS: 1
     Dates: start: 20190313, end: 20190313
  11. KEYTRUDA [Suspect]
     Active Substance: PEMBROLIZUMAB
     Indication: OVARIAN CANCER
     Dosage: QUANTITY: 2, DAYS: 1
     Dates: start: 20190313, end: 20190313
  12. KEYTRUDA [Suspect]
     Active Substance: PEMBROLIZUMAB
     Dosage: QUANTITY: 2, DAYS: 1
     Dates: start: 20190504, end: 20190504
  13. SODIUM CHLORIDE. [Concomitant]
     Active Substance: SODIUM CHLORIDE
     Dosage: 50 MILLILITER, QUANTITY: 2, DAYS: 1
     Dates: start: 20190504, end: 20190504
  14. SODIUM CHLORIDE. [Concomitant]
     Active Substance: SODIUM CHLORIDE
     Dosage: 50 MILLILITER, QUANTITY: 2, DAYS: 1
     Dates: start: 20180618, end: 20190618
  15. SODIUM CHLORIDE. [Concomitant]
     Active Substance: SODIUM CHLORIDE
     Dosage: 1000 MILLILITER, QUANTITY: 1, DAYS: 1
     Dates: start: 20190618, end: 20190618

REACTIONS (4)
  - Ascites [Unknown]
  - Adverse event [Unknown]
  - Inappropriate schedule of product administration [Unknown]
  - Product use in unapproved indication [Unknown]

NARRATIVE: CASE EVENT DATE: 201903
